FAERS Safety Report 8153929-5 (Version None)
Quarter: 2012Q1

REPORT INFORMATION
  Report Type: 
  Country: None (occurrence: None)
  Receive Date: 20120221
  Receipt Date: 20120221
  Transmission Date: 20120608
  Serious: Yes (Other)
  Sender: FDA-Public Use
  Company Number: None

PATIENT
  Sex: Female
  Weight: 64.863 kg

DRUGS (2)
  1. EMEND [Concomitant]
     Dosage: 80MG.
     Route: 048
     Dates: start: 20120118, end: 20120119
  2. EMEND [Suspect]
     Indication: PROPHYLAXIS OF NAUSEA AND VOMITING
     Dosage: 125MG
     Route: 048
     Dates: start: 20120117, end: 20120117

REACTIONS (5)
  - HEADACHE [None]
  - INSOMNIA [None]
  - NEUTROPENIA [None]
  - DIZZINESS [None]
  - ANAEMIA [None]
